FAERS Safety Report 18379803 (Version 1)
Quarter: 2020Q4

REPORT INFORMATION
  Report Type: Spontaneous
  Country: FR (occurrence: FR)
  Receive Date: 20201014
  Receipt Date: 20201014
  Transmission Date: 20210114
  Serious: Yes (Other)
  Sender: FDA-Public Use
  Company Number: FR-TEVA-2020-FR-1837615

PATIENT
  Age: 67 Year
  Sex: Female
  Weight: 52 kg

DRUGS (4)
  1. LEVOFOLINATE CALCIQUE [Suspect]
     Active Substance: LEVOLEUCOVORIN CALCIUM
     Indication: PANCREATIC CARCINOMA
     Dosage: 300 MG
     Route: 042
     Dates: start: 20200910, end: 20200910
  2. FLUOROURACILE [Suspect]
     Active Substance: FLUOROURACIL
     Indication: PANCREATIC CARCINOMA
     Dosage: 7200 MG
     Route: 042
     Dates: start: 20200910, end: 20200911
  3. OXALIPLATINE [Suspect]
     Active Substance: OXALIPLATIN
     Indication: PANCREATIC CARCINOMA
     Dosage: 130 MG
     Route: 042
     Dates: start: 20200910, end: 20200910
  4. IRINOTECAN FRESENIUS [Suspect]
     Active Substance: IRINOTECAN
     Indication: PANCREATIC CARCINOMA
     Dosage: 220 MG
     Route: 042
     Dates: start: 20200910, end: 20200910

REACTIONS (3)
  - Dysarthria [Recovered/Resolved]
  - Muscle spasms [Recovered/Resolved]
  - Throat tightness [Recovered/Resolved]

NARRATIVE: CASE EVENT DATE: 20200910
